FAERS Safety Report 24365692 (Version 1)
Quarter: 2024Q3

REPORT INFORMATION
  Report Type: Spontaneous
  Country: IT (occurrence: IT)
  Receive Date: 20240926
  Receipt Date: 20240926
  Transmission Date: 20241017
  Serious: Yes (Other)
  Sender: MYLAN
  Company Number: IT-MYLANLABS-2024M1086196

PATIENT
  Age: 55 Year
  Sex: Female

DRUGS (3)
  1. IMATINIB [Suspect]
     Active Substance: IMATINIB
     Indication: Systemic mastocytosis
     Dosage: 100 MILLIGRAM
     Route: 065
     Dates: start: 201806, end: 201810
  2. MIDOSTAURIN [Suspect]
     Active Substance: MIDOSTAURIN
     Indication: Systemic mastocytosis
     Dosage: 200 MILLIGRAM, QD
     Route: 065
     Dates: start: 201901
  3. CLADRIBINE [Suspect]
     Active Substance: CLADRIBINE
     Indication: Systemic mastocytosis
     Dosage: 0.14 MILLIGRAM/KILOGRAM, MONTHLY
     Route: 058
     Dates: end: 202006

REACTIONS (1)
  - Drug ineffective [Unknown]
